FAERS Safety Report 19045377 (Version 1)
Quarter: 2021Q1

REPORT INFORMATION
  Report Type: Spontaneous
  Country: IT (occurrence: IT)
  Receive Date: 20210322
  Receipt Date: 20210322
  Transmission Date: 20210420
  Serious: Yes (Other)
  Sender: FDA-Public Use
  Company Number: NVSC2021IT055971

PATIENT
  Age: 83 Year
  Sex: Female

DRUGS (4)
  1. TYVERB [Suspect]
     Active Substance: LAPATINIB
     Indication: BREAST CANCER
     Dosage: 1000 MG, CYCLIC
     Route: 048
     Dates: start: 20210112, end: 20210225
  2. LOBIVON [Concomitant]
     Active Substance: NEBIVOLOL HYDROCHLORIDE
     Indication: PRODUCT USED FOR UNKNOWN INDICATION
     Dosage: 1 DF
     Route: 048
  3. CAPECITABINE MEDAC [Suspect]
     Active Substance: CAPECITABINE
     Indication: BREAST CANCER
     Dosage: 1500 MG, CYCLIC
     Route: 048
     Dates: start: 20210205, end: 20210218
  4. COAPROVEL [Concomitant]
     Active Substance: HYDROCHLOROTHIAZIDE\IRBESARTAN
     Indication: PRODUCT USED FOR UNKNOWN INDICATION
     Dosage: 1 DF
     Route: 048

REACTIONS (3)
  - Neuropathy peripheral [Recovered/Resolved]
  - Rash [Recovered/Resolved]
  - Skin exfoliation [Recovered/Resolved]

NARRATIVE: CASE EVENT DATE: 20210225
